FAERS Safety Report 9450721 (Version 1)
Quarter: 2013Q3

REPORT INFORMATION
  Report Type: Spontaneous
  Country: US (occurrence: None)
  Receive Date: 20130807
  Receipt Date: 20130807
  Transmission Date: 20140515
  Serious: Yes (Other)
  Sender: FDA-Public Use
  Company Number: SYM-2013-07643

PATIENT
  Age: 57 Year
  Sex: Female

DRUGS (2)
  1. TRAMADOL [Suspect]
     Indication: PAIN
  2. ACETAMINOPHEN [Suspect]
     Indication: PAIN

REACTIONS (4)
  - Hyperaesthesia [None]
  - Pain [None]
  - Hyperhidrosis [None]
  - Irritability [None]
